FAERS Safety Report 7319185-2 (Version None)
Quarter: 2011Q1

REPORT INFORMATION
  Report Type: 
  Country: None (occurrence: None)
  Receive Date: 20110228
  Receipt Date: 20110216
  Transmission Date: 20110831
  Serious: Yes (Other)
  Sender: FDA-Public Use
  Company Number: US-AMGEN-USASP2011009116

PATIENT
  Age: 77 Year
  Sex: Male

DRUGS (6)
  1. ATORVASTATIN CALCIUM [Concomitant]
     Dosage: UNK
  2. LISINOPRIL [Concomitant]
     Dosage: UNK
  3. ATENOLOL [Concomitant]
     Dosage: UNK
  4. METHOTREXATE [Concomitant]
     Dosage: UNK
  5. ENBREL [Suspect]
     Indication: PRODUCT USED FOR UNKNOWN INDICATION
  6. HUMIRA [Suspect]
     Dosage: 40 MG, Q2WK
     Route: 058
     Dates: start: 20070101

REACTIONS (3)
  - SINUS CONGESTION [None]
  - NASOPHARYNGITIS [None]
  - PLEURAL EFFUSION [None]
